FAERS Safety Report 11977682 (Version 2)
Quarter: 2016Q1

REPORT INFORMATION
  Report Type: Spontaneous
  Country: JP (occurrence: JP)
  Receive Date: 20160129
  Receipt Date: 20160222
  Transmission Date: 20160526
  Serious: Yes (Other)
  Sender: FDA-Public Use
  Company Number: JP-PFIZER INC-2016050589

PATIENT
  Age: 83 Year
  Sex: Female

DRUGS (3)
  1. LYRICA [Suspect]
     Active Substance: PREGABALIN
     Indication: HYPOAESTHESIA
     Dosage: 25 MG, 1X/DAY
     Route: 048
     Dates: start: 20151118, end: 20151202
  2. LIMAPROST [Suspect]
     Active Substance: LIMAPROST
     Indication: HYPOAESTHESIA
     Dosage: 5 UG, 3X/DAY
     Route: 048
     Dates: start: 20151002
  3. GOSHAJINKIGAN [Suspect]
     Active Substance: HERBALS
     Indication: HYPOAESTHESIA
     Dosage: 2.5 G, 3X/DAY
     Route: 048
     Dates: start: 20151002

REACTIONS (1)
  - Retinal haemorrhage [Unknown]

NARRATIVE: CASE EVENT DATE: 201512
